FAERS Safety Report 17928231 (Version 1)
Quarter: 2020Q2

REPORT INFORMATION
  Report Type: Spontaneous
  Country: US (occurrence: US)
  Receive Date: 20200623
  Receipt Date: 20200623
  Transmission Date: 20200714
  Serious: Yes (Other)
  Sender: FDA-Public Use
  Company Number: US-ROCHE-2627172

PATIENT
  Sex: Female

DRUGS (16)
  1. EZETIMIBE. [Concomitant]
     Active Substance: EZETIMIBE
  2. GABAPENTIN. [Concomitant]
     Active Substance: GABAPENTIN
  3. LISINOPRIL. [Concomitant]
     Active Substance: LISINOPRIL
  4. METOPROLOL SUCCINATE. [Concomitant]
     Active Substance: METOPROLOL SUCCINATE
  5. ONDANSETRON [Concomitant]
     Active Substance: ONDANSETRON
  6. SIMVASTATIN. [Concomitant]
     Active Substance: SIMVASTATIN
  7. DRONABINOL. [Concomitant]
     Active Substance: DRONABINOL
  8. MAGNESIUM [Concomitant]
     Active Substance: MAGNESIUM
  9. ALPRAZOLAM. [Concomitant]
     Active Substance: ALPRAZOLAM
  10. ELIQUIS [Concomitant]
     Active Substance: APIXABAN
  11. SENNA [Concomitant]
     Active Substance: SENNA LEAF\SENNOSIDES\SENNOSIDES A AND B
  12. CLONIDINE HCL [Concomitant]
     Active Substance: CLONIDINE HYDROCHLORIDE
  13. OLANZAPINE. [Concomitant]
     Active Substance: OLANZAPINE
  14. PANTOPRAZOLE SODIUM. [Concomitant]
     Active Substance: PANTOPRAZOLE SODIUM
  15. ZELBORAF [Suspect]
     Active Substance: VEMURAFENIB
     Indication: COLON CANCER
     Route: 048
  16. SPIRONOLACTONE. [Concomitant]
     Active Substance: SPIRONOLACTONE

REACTIONS (1)
  - Malignant neoplasm progression [Unknown]
